FAERS Safety Report 9932573 (Version 1)
Quarter: 2014Q1

REPORT INFORMATION
  Report Type: Spontaneous
  Country: AU (occurrence: AU)
  Receive Date: 20140228
  Receipt Date: 20140228
  Transmission Date: 20141002
  Serious: Yes (Other)
  Sender: FDA-Public Use
  Company Number: PHHY2014AU021450

PATIENT
  Sex: 0

DRUGS (1)
  1. QUETIAPINE [Suspect]

REACTIONS (3)
  - Hypokalaemia [Unknown]
  - Hypomagnesaemia [Unknown]
  - Torsade de pointes [Unknown]
